FAERS Safety Report 13841591 (Version 1)
Quarter: 2017Q3

REPORT INFORMATION
  Report Type: Spontaneous
  Country: US (occurrence: US)
  Receive Date: 20170807
  Receipt Date: 20170807
  Transmission Date: 20171127
  Serious: No
  Sender: FDA-Public Use
  Company Number: US-CELLTRION HEALTHCARE HUNGARY KFT-2017US006662

PATIENT

DRUGS (1)
  1. INFLECTRA [Suspect]
     Active Substance: INFLIXIMAB-DYYB
     Indication: SPONDYLOARTHROPATHY
     Route: 065

REACTIONS (1)
  - Off label use [Unknown]
